FAERS Safety Report 8613847-2 (Version None)
Quarter: 2012Q3

REPORT INFORMATION
  Report Type: 
  Country: None (occurrence: None)
  Receive Date: 20120823
  Receipt Date: 20120815
  Transmission Date: 20120928
  Serious: Yes (Other)
  Sender: FDA-Public Use
  Company Number: AR-AMGEN-ARGSP2012050492

PATIENT
  Age: 35 Year
  Sex: Female

DRUGS (3)
  1. DICLOFENAC SODIUM [Concomitant]
     Dosage: UNK
  2. ENBREL [Suspect]
     Indication: RHEUMATOID ARTHRITIS
     Dosage: 25 MG, 2X/WEEK
     Route: 058
     Dates: start: 20090528, end: 20110701
  3. IRON [Concomitant]
     Dosage: UNK

REACTIONS (1)
  - UTERINE LEIOMYOMA [None]
